FAERS Safety Report 8533596-9 (Version None)
Quarter: 2012Q3

REPORT INFORMATION
  Report Type: 
  Country: None (occurrence: None)
  Receive Date: 20120724
  Receipt Date: 20120716
  Transmission Date: 20120928
  Serious: Yes (Other)
  Sender: FDA-Public Use
  Company Number: CA-JNJFOC-20120707700

PATIENT
  Sex: Male
  Weight: 156 kg

DRUGS (1)
  1. REMICADE [Suspect]
     Indication: PSORIASIS
     Route: 042
     Dates: start: 20091124

REACTIONS (4)
  - ASTHENIA [None]
  - BLOOD PRESSURE ABNORMAL [None]
  - PRESYNCOPE [None]
  - DIZZINESS [None]
